FAERS Safety Report 6676350-5 (Version None)
Quarter: 2010Q2

REPORT INFORMATION
  Report Type: 
  Country: None (occurrence: None)
  Receive Date: 20100412
  Receipt Date: 20100323
  Transmission Date: 20101027
  Serious: Yes (Hospitalization)
  Sender: FDA-Public Use
  Company Number: CH-JNJFOC-20080505545

PATIENT
  Age: 71 Year
  Sex: Female

DRUGS (8)
  1. DOXORUBICIN HCL [Suspect]
     Indication: BREAST CANCER METASTATIC
     Route: 042
     Dates: start: 20071220, end: 20080519
  2. BEVACIZUMAB [Suspect]
     Indication: BREAST CANCER METASTATIC
     Route: 042
  3. ASPIRIN [Concomitant]
     Route: 048
  4. NORVASC [Concomitant]
     Route: 048
  5. ZESTORETIC [Concomitant]
     Route: 048
  6. CREON [Concomitant]
     Route: 048
  7. HUMALOG [Concomitant]
     Route: 058
  8. SORTIS [Concomitant]
     Route: 048

REACTIONS (1)
  - MYOCARDIAL ISCHAEMIA [None]
